FAERS Safety Report 17889394 (Version 1)
Quarter: 2020Q2

REPORT INFORMATION
  Report Type: Spontaneous
  Country: US (occurrence: US)
  Receive Date: 20200612
  Receipt Date: 20200612
  Transmission Date: 20200714
  Serious: Yes (Hospitalization)
  Sender: FDA-Public Use
  Company Number: None

PATIENT
  Age: 55 Year
  Sex: Male
  Weight: 59.36 kg

DRUGS (3)
  1. LEUCOVORIN CALCIUM. [Suspect]
     Active Substance: LEUCOVORIN CALCIUM
     Dates: end: 20200602
  2. ELOXATIN [Suspect]
     Active Substance: OXALIPLATIN
     Dates: end: 20200602
  3. 5-FLUOROURACIL (5-FU) [Suspect]
     Active Substance: FLUOROURACIL
     Dates: end: 20200604

REACTIONS (9)
  - Haemoglobin decreased [None]
  - Palpitations [None]
  - Pneumoperitoneum [None]
  - Nausea [None]
  - Chest pain [None]
  - Gastrointestinal wall thickening [None]
  - Granulomatous lymphadenitis [None]
  - Dyspnoea exertional [None]
  - Left atrial enlargement [None]

NARRATIVE: CASE EVENT DATE: 20200606
